FAERS Safety Report 15900605 (Version 1)
Quarter: 2019Q1

REPORT INFORMATION
  Report Type: Spontaneous
  Country: US (occurrence: US)
  Receive Date: 20190110
  Receipt Date: 20190110
  Transmission Date: 20190417
  Serious: No
  Sender: FDA-Public Use
  Company Number: None

PATIENT
  Age: 65 Year
  Sex: Female

DRUGS (1)
  1. ENBREL [Suspect]
     Active Substance: ETANERCEPT
     Dates: start: 20180405

REACTIONS (6)
  - Sinusitis [None]
  - Bedridden [None]
  - Product dose omission [None]
  - Arthropod sting [None]
  - Rheumatoid arthritis [None]
  - Pain [None]

NARRATIVE: CASE EVENT DATE: 20181205
